FAERS Safety Report 25413111 (Version 1)
Quarter: 2025Q2

REPORT INFORMATION
  Report Type: Spontaneous
  Country: VN (occurrence: None)
  Receive Date: 20250609
  Receipt Date: 20250609
  Transmission Date: 20250716
  Serious: Yes (Death, Hospitalization, Other)
  Sender: INCYTE
  Company Number: VN-002147023-NVSC2025VN091126

PATIENT
  Age: 53 Year

DRUGS (7)
  1. RUXOLITINIB [Suspect]
     Active Substance: RUXOLITINIB
     Indication: Myelofibrosis
     Dosage: 20 MG, Q12H
     Route: 065
  2. RUXOLITINIB [Suspect]
     Active Substance: RUXOLITINIB
     Dosage: 25 MG, Q12H
     Route: 065
  3. RUXOLITINIB [Suspect]
     Active Substance: RUXOLITINIB
     Dosage: 25 MG, Q12H
     Route: 065
  4. RUXOLITINIB [Suspect]
     Active Substance: RUXOLITINIB
     Dosage: 10 MG, BID
     Route: 065
  5. RUXOLITINIB [Suspect]
     Active Substance: RUXOLITINIB
     Dosage: 10 MG, BID
     Route: 065
  6. HYDROXYUREA [Concomitant]
     Active Substance: HYDROXYUREA
     Indication: Myelofibrosis
     Dosage: 2000 MG, QD
     Route: 065
  7. HYDROXYUREA [Concomitant]
     Active Substance: HYDROXYUREA
     Dosage: 1000 MG, QD
     Route: 065

REACTIONS (10)
  - White blood cell count increased [Unknown]
  - Off label use [Unknown]
  - Drug withdrawal syndrome [Unknown]
  - Hypertensive crisis [Fatal]
  - Cerebral haemorrhage [Fatal]
  - Discomfort [Unknown]
  - Drug ineffective [Unknown]
  - Platelet count increased [Unknown]
  - Splenomegaly [Unknown]
  - Splenic infarction [Unknown]
